FAERS Safety Report 16974301 (Version 2)
Quarter: 2019Q4

REPORT INFORMATION
  Report Type: Not Available
  Country: US (occurrence: US)
  Receive Date: 20191030
  Receipt Date: 20191119
  Transmission Date: 20200122
  Serious: Yes (Hospitalization)
  Sender: FDA-Public Use
  Company Number: US-NEUROCRINE BIOSCIENCES INC.-2019NBI03108

PATIENT
  Age: 74 Year
  Sex: Male

DRUGS (8)
  1. INGREZZA [Suspect]
     Active Substance: VALBENAZINE
     Indication: TARDIVE DYSKINESIA
     Dosage: ON THERAPY MORE THAN 2 YEARS
     Route: 048
  2. ATORVASTATIN [Concomitant]
     Active Substance: ATORVASTATIN
  3. CLONAZEPAM. [Concomitant]
     Active Substance: CLONAZEPAM
  4. REMERON [Concomitant]
     Active Substance: MIRTAZAPINE
  5. ROPINIROLE. [Concomitant]
     Active Substance: ROPINIROLE
     Dosage: 0.5 (UNITS NOT PROVIDED)
  6. TAMSULOSIN [Concomitant]
     Active Substance: TAMSULOSIN
  7. QUETIAPINE. [Concomitant]
     Active Substance: QUETIAPINE
  8. SERTRALINE [Concomitant]
     Active Substance: SERTRALINE HYDROCHLORIDE

REACTIONS (4)
  - Off label use [Unknown]
  - Anxiety [Recovering/Resolving]
  - Suicide attempt [Recovering/Resolving]
  - Depression [Recovering/Resolving]

NARRATIVE: CASE EVENT DATE: 20191005
